FAERS Safety Report 7402735-5 (Version None)
Quarter: 2011Q2

REPORT INFORMATION
  Report Type: 
  Country: None (occurrence: None)
  Receive Date: 20110408
  Receipt Date: 20101210
  Transmission Date: 20111010
  Serious: No
  Sender: FDA-Public Use
  Company Number: US-BAYER-2011-005873

PATIENT
  Sex: Male
  Weight: 12 kg

DRUGS (3)
  1. IRON [Suspect]
     Indication: ACCIDENTAL DRUG INTAKE BY CHILD
     Dosage: COULD HAVE ALSO EATEN 2 OR 3 TABLETS
     Route: 048
     Dates: start: 20101210
  2. ASPIRIN [Suspect]
     Indication: ACCIDENTAL DRUG INTAKE BY CHILD
     Dosage: COUNT SIZE 2S
     Route: 048
     Dates: start: 20101210
  3. UNCODEABLE ^UNCLASSIFIABLE^ [Suspect]
     Indication: ACCIDENTAL DRUG INTAKE BY CHILD
     Dosage: CHILD MAY HAVE INGESTED AT MOST 2 TABLETS OF
     Dates: start: 20101210

REACTIONS (1)
  - PSYCHOMOTOR HYPERACTIVITY [None]
